FAERS Safety Report 5118005-4 (Version None)
Quarter: 2006Q3

REPORT INFORMATION
  Report Type: 
  Country: None (occurrence: None)
  Receive Date: 20060928
  Receipt Date: 20060928
  Transmission Date: 20061208
  Serious: Yes (Death)
  Sender: FDA-Public Use
  Company Number: None

PATIENT
  Sex: Male
  Weight: 64.8644 kg

DRUGS (12)
  1. METHOTREXATE [Suspect]
     Indication: RHEUMATOID ARTHRITIS
     Dosage: 20MG  WEEK PO
     Route: 048
  2. ETANERCEPT [Suspect]
     Indication: RHEUMATOID ARTHRITIS
     Dosage: 50 MG WK SQ
     Route: 058
  3. HYDROXYCHLOROQUINE SULFATE [Suspect]
     Indication: RHEUMATOID ARTHRITIS
     Dosage: 200MG BID SQ
     Route: 058
  4. SULFASALAZINE [Suspect]
     Indication: RHEUMATOID ARTHRITIS
     Dosage: 1000MG BID SQ
     Route: 058
  5. PLACEBO [Suspect]
  6. TAMSULOSIN HCL [Concomitant]
  7. AMLODIPINE BESYLATE [Concomitant]
  8. LISINOPRIL [Concomitant]
  9. IPRATROPIUM BROMIDE [Concomitant]
  10. FLUTICASONE PROPIONATE [Concomitant]
  11. PROPOXYPHENE HYDROCHLORIDE [Concomitant]
  12. ALBUTEROL [Concomitant]

REACTIONS (6)
  - CARDIAC FAILURE CONGESTIVE [None]
  - ECHOCARDIOGRAM ABNORMAL [None]
  - PLEURAL EFFUSION [None]
  - PROCEDURAL HYPOTENSION [None]
  - PULMONARY OEDEMA [None]
  - SMALL INTESTINAL OBSTRUCTION [None]
